FAERS Safety Report 10611618 (Version 1)
Quarter: 2014Q4

REPORT INFORMATION
  Report Type: Spontaneous
  Country: DE (occurrence: DE)
  Receive Date: 20141126
  Receipt Date: 20141126
  Transmission Date: 20150529
  Serious: Yes (Death, Other)
  Sender: FDA-Public Use
  Company Number: DE-PFIZER INC-2014324278

PATIENT

DRUGS (6)
  1. CIPRALEX [Concomitant]
     Active Substance: ESCITALOPRAM OXALATE
     Dosage: 20 MG, DAILY (0 - 8.6 GESTATIONAL WEEKS)
     Route: 048
  2. PASPERTIN [Concomitant]
     Active Substance: METOCLOPRAMIDE HYDROCHLORIDE
     Indication: NAUSEA
     Dosage: UNK
     Route: 048
  3. CIPRALEX [Concomitant]
     Active Substance: ESCITALOPRAM OXALATE
     Indication: ANXIETY DISORDER
     Dosage: 30 MG, DAILY (0- 8.6 GESTATIONAL WEEKS)
     Route: 064
  4. TARDYFERON [Concomitant]
     Active Substance: FERROUS SULFATE\FOLIC ACID
     Indication: RESTLESS LEGS SYNDROME
     Dosage: UNKNOWN TRIMESTER
     Route: 064
  5. DIAZEPAM. [Concomitant]
     Active Substance: DIAZEPAM
     Indication: ANXIETY DISORDER
     Dosage: 2.5 MG, DAILY ( 2.4 - 6.5 GESTATIONAL WEEKS)
     Route: 064
  6. VENLAFAXINE HCL [Suspect]
     Active Substance: VENLAFAXINE HYDROCHLORIDE
     Indication: ANXIETY
     Dosage: 112.5 MG, DAILY (5-38 GESTATIONAL WEEKS)
     Route: 064
     Dates: start: 20131118, end: 20140707

REACTIONS (4)
  - Foetal death [Fatal]
  - Stillbirth [Fatal]
  - Maternal exposure during pregnancy [Fatal]
  - Umbilical cord abnormality [Unknown]
